FAERS Safety Report 18455351 (Version 1)
Quarter: 2020Q4

REPORT INFORMATION
  Report Type: Spontaneous
  Country: NL (occurrence: NL)
  Receive Date: 20201103
  Receipt Date: 20201103
  Transmission Date: 20210114
  Serious: Yes (Hospitalization, Other)
  Sender: FDA-Public Use
  Company Number: NL-DENTSPLY-2020SCDP000351

PATIENT
  Age: 59 Year
  Sex: Male

DRUGS (1)
  1. ISOPROPYL ALCOHOL. [Suspect]
     Active Substance: ISOPROPYL ALCOHOL
     Indication: PRODUCT USE IN UNAPPROVED INDICATION
     Dosage: UNK

REACTIONS (9)
  - Toxicity to various agents [Unknown]
  - Intentional product misuse [Unknown]
  - Hyperthyroidism [Unknown]
  - Atrial tachycardia [Recovered/Resolved]
  - Hypocalcaemia [Unknown]
  - Metabolic acidosis [Unknown]
  - Acute kidney injury [Recovering/Resolving]
  - Atrial fibrillation [Unknown]
  - Brain natriuretic peptide increased [Unknown]
